FAERS Safety Report 5482475-2 (Version None)
Quarter: 2007Q4

REPORT INFORMATION
  Report Type: 
  Country: None (occurrence: None)
  Receive Date: 20071011
  Receipt Date: 20071009
  Transmission Date: 20080405
  Serious: Yes (Death, Life-Threatening, Hospitalization, Other)
  Sender: FDA-Public Use
  Company Number: HQWYE617010MAY05

PATIENT
  Sex: Female
  Weight: 61.4 kg

DRUGS (6)
  1. TACROLIMUS [Suspect]
     Indication: PROPHYLAXIS AGAINST TRANSPLANT REJECTION
     Route: 050
     Dates: start: 20050325, end: 20050505
  2. PREDNISONE [Suspect]
     Dosage: UNKNOWN
     Route: 048
  3. MEROPENEM [Concomitant]
  4. MYCOPHENOLATE MOFETIL [Suspect]
     Dosage: UNKNOWN
     Route: 048
  5. METRONIDAZOLE [Concomitant]
  6. BACTRIM [Concomitant]

REACTIONS (12)
  - CARDIAC HYPERTROPHY [None]
  - DEEP VEIN THROMBOSIS [None]
  - GENERAL PHYSICAL HEALTH DETERIORATION [None]
  - HAEMODIALYSIS [None]
  - HAEMOGLOBIN DECREASED [None]
  - HYPERGLYCAEMIA [None]
  - INFECTION [None]
  - PLATELET COUNT DECREASED [None]
  - PULMONARY EMBOLISM [None]
  - PULMONARY HYPERTENSION [None]
  - SEPTIC SHOCK [None]
  - WHITE BLOOD CELL COUNT DECREASED [None]
